FAERS Safety Report 17567966 (Version 1)
Quarter: 2020Q1

REPORT INFORMATION
  Report Type: Spontaneous
  Country: PT (occurrence: PT)
  Receive Date: 20200320
  Receipt Date: 20200320
  Transmission Date: 20200409
  Serious: Yes (Life-Threatening, Hospitalization)
  Sender: FDA-Public Use
  Company Number: PT-PERRIGO-20PT004036

PATIENT
  Age: 49 Year
  Sex: Male

DRUGS (3)
  1. DEFLAZACORT [Suspect]
     Active Substance: DEFLAZACORT
     Indication: TONSILLITIS
     Dosage: UNKNOWN
     Route: 065
  2. IBUPROFEN. [Suspect]
     Active Substance: IBUPROFEN
     Indication: TONSILLITIS
     Dosage: UNKNOWN
     Route: 065
  3. AMOXICILLIN CLAVULANIC ACID [Suspect]
     Active Substance: AMOXICILLIN\CLAVULANIC ACID
     Indication: TONSILLITIS
     Dosage: 1 DOSAGE FORM, SINGLE DOSE
     Route: 065

REACTIONS (3)
  - Off label use [Unknown]
  - Drug hypersensitivity [Recovered/Resolved]
  - Anaphylactic reaction [Recovered/Resolved]
